FAERS Safety Report 22239179 (Version 1)
Quarter: 2023Q2

REPORT INFORMATION
  Report Type: Spontaneous
  Country: US (occurrence: None)
  Receive Date: 20230420
  Receipt Date: 20230420
  Transmission Date: 20230722
  Serious: Yes (Hospitalization)
  Sender: FDA-Public Use
  Company Number: None

PATIENT
  Age: 74 Year
  Sex: Female
  Weight: 84.15 kg

DRUGS (3)
  1. SUTAB [Suspect]
     Active Substance: MAGNESIUM SULFATE\POTASSIUM CHLORIDE\SODIUM SULFATE
     Indication: Colonoscopy
     Dosage: OTHER QUANTITY : 24 TABLET(S);?OTHER FREQUENCY : 15 HRS + 7 HRS BEF;?
     Route: 048
     Dates: start: 20230321, end: 20230322
  2. PANTOPRAZOLE [Concomitant]
     Active Substance: PANTOPRAZOLE
  3. MINOXIDIL [Concomitant]
     Active Substance: MINOXIDIL

REACTIONS (6)
  - Vomiting [None]
  - Throat irritation [None]
  - Oral discomfort [None]
  - Vocal cord disorder [None]
  - Throat irritation [None]
  - Dysphonia [None]

NARRATIVE: CASE EVENT DATE: 20230322
